FAERS Safety Report 17781142 (Version 2)
Quarter: 2020Q2

REPORT INFORMATION
  Report Type: Spontaneous
  Country: AT (occurrence: AT)
  Receive Date: 20200514
  Receipt Date: 20200520
  Transmission Date: 20200714
  Serious: Yes (Death, Hospitalization, Other)
  Sender: FDA-Public Use
  Company Number: PHHY2019AT219118

PATIENT
  Sex: Female

DRUGS (8)
  1. ANAKINRA [Suspect]
     Active Substance: ANAKINRA
     Indication: HAEMOPHAGOCYTIC LYMPHOHISTIOCYTOSIS
     Dosage: FROM DAY 3 POST HLH DIAGNOSIS,ABSOLUTE DOSE OF 100-200MG 3X DAILY
     Route: 058
  2. PREDNISOLONE. [Suspect]
     Active Substance: PREDNISOLONE
     Indication: HAEMOPHAGOCYTIC LYMPHOHISTIOCYTOSIS
     Dosage: 250-500 MG STARTING ON DAY 8 POST HLH DIAGNOSIS
     Route: 065
  3. PREDNISONE. [Suspect]
     Active Substance: PREDNISONE
     Indication: HAEMOPHAGOCYTIC LYMPHOHISTIOCYTOSIS
     Dosage: MORE THAN 1 MG/KG
     Route: 065
  4. GANCICLOVIR. [Suspect]
     Active Substance: GANCICLOVIR
     Indication: CYTOMEGALOVIRUS INFECTION
     Dosage: UNK
     Route: 065
  5. CYCLOPHOSPHAMIDE. [Suspect]
     Active Substance: CYCLOPHOSPHAMIDE
     Indication: ANTISYNTHETASE SYNDROME
     Dosage: ON DAY 14 POST HLH DIAGNOSIS
     Route: 065
  6. PREDNISOLONE. [Suspect]
     Active Substance: PREDNISOLONE
     Dosage: LESS THAN 1 MG/KG
     Route: 065
  7. RITUXIMAB. [Suspect]
     Active Substance: RITUXIMAB
     Indication: ANTISYNTHETASE SYNDROME
     Dosage: ON DAY 8 AND 15 POST HLH DIAGNOSIS
     Route: 065
  8. ANAKINRA [Suspect]
     Active Substance: ANAKINRA
     Dosage: FROM DAY 3 POST HLH DIAGNOSIS, ABSOLUTE DOSE OF 100- 200MG 3X DAILY
     Route: 065

REACTIONS (8)
  - Clostridium difficile colitis [Unknown]
  - Product use in unapproved indication [Unknown]
  - Nosocomial infection [Unknown]
  - Therapy non-responder [Unknown]
  - Infection [Fatal]
  - Vascular device infection [Unknown]
  - Restrictive pulmonary disease [Unknown]
  - Disease progression [Recovered/Resolved]
